FAERS Safety Report 11374239 (Version 1)
Quarter: 2015Q3

REPORT INFORMATION
  Report Type: Spontaneous
  Country: US (occurrence: None)
  Receive Date: 20150804
  Receipt Date: 20150804
  Transmission Date: 20151125
  Serious: Yes (Hospitalization)
  Sender: FDA-Public Use
  Company Number: GB-SEPTODONT-201402210

PATIENT
  Age: 53 Year
  Sex: Male

DRUGS (2)
  1. SEPTANEST ARTICAINE HYDROCHLORIDE; EPINEPHRINE BITARTRATE [Suspect]
     Active Substance: ARTICAINE HYDROCHLORIDE\EPINEPHRINE BITARTRATE
     Indication: LOCAL ANAESTHESIA
     Route: 004
  2. LIGNOCAINE WITH ADRENALINE LIDOCAINE HYDROCHLORIDE; ADRENALINE [Suspect]
     Active Substance: EPINEPHRINE BITARTRATE\LIDOCAINE HYDROCHLORIDE
     Indication: LOCAL ANAESTHESIA
     Route: 004

REACTIONS (5)
  - Psychotic disorder [None]
  - Blood sodium increased [None]
  - Paranoia [None]
  - Blood pressure increased [None]
  - Hallucination [None]

NARRATIVE: CASE EVENT DATE: 20121231
